FAERS Safety Report 6999955-0 (Version None)
Quarter: 2010Q3

REPORT INFORMATION
  Report Type: 
  Country: None (occurrence: None)
  Receive Date: 20100920
  Receipt Date: 20100914
  Transmission Date: 20110219
  Serious: Yes (Other)
  Sender: FDA-Public Use
  Company Number: CN-BAYER-201039268GPV

PATIENT
  Age: 23 Year
  Sex: Female

DRUGS (3)
  1. MOXIFLOXACIN [Suspect]
     Indication: URINARY TRACT INFECTION
     Route: 048
  2. CEFOPERAZONE SODIUM [Concomitant]
  3. SULBACTAM SODIUM [Concomitant]

REACTIONS (2)
  - GRAND MAL CONVULSION [None]
  - STATUS EPILEPTICUS [None]
